FAERS Safety Report 6818489-7 (Version None)
Quarter: 2010Q3

REPORT INFORMATION
  Report Type: 
  Country: None (occurrence: None)
  Receive Date: 20100706
  Receipt Date: 20080605
  Transmission Date: 20110219
  Serious: No
  Sender: FDA-Public Use
  Company Number: US-PFIZER INC-2008043600

PATIENT
  Age: 63 Year
  Sex: Female

DRUGS (12)
  1. ZITHROMAX [Suspect]
     Indication: INFECTION PROPHYLAXIS
     Dates: start: 20080508, end: 20080512
  2. ZITHROMAX [Suspect]
     Indication: TOOTH EXTRACTION
  3. CHLOR-TRIMETON [Concomitant]
  4. ALBUTEROL [Concomitant]
     Indication: ASTHMA
     Route: 055
  5. HERBAL PREPARATION [Concomitant]
  6. VACCINIUM MACROCARPON [Concomitant]
  7. HERBAL PREPARATION [Concomitant]
  8. HERBAL PREPARATION [Concomitant]
  9. ALL OTHER THERAPEUTIC PRODUCTS [Concomitant]
  10. VITAMIN C [Concomitant]
  11. VITAMINS [Concomitant]
  12. MINERALS NOS [Concomitant]

REACTIONS (3)
  - CHROMATURIA [None]
  - INCORRECT DOSE ADMINISTERED [None]
  - OFF LABEL USE [None]
